FAERS Safety Report 17374256 (Version 1)
Quarter: 2020Q1

REPORT INFORMATION
  Report Type: Spontaneous
  Country: PL (occurrence: PL)
  Receive Date: 20200205
  Receipt Date: 20200205
  Transmission Date: 20200409
  Serious: Yes (Death, Hospitalization)
  Sender: FDA-Public Use
  Company Number: PL-CELGENEUS-POL-20200105027

PATIENT
  Age: 71 Year
  Sex: Female
  Weight: 74.4 kg

DRUGS (18)
  1. PRACINOSTAT [Concomitant]
     Active Substance: PRACINOSTAT
     Indication: ACUTE MYELOID LEUKAEMIA
     Dosage: 60 MILLIGRAM
     Route: 048
     Dates: start: 20191018, end: 20191227
  2. TRAMADOL. [Concomitant]
     Active Substance: TRAMADOL
     Indication: BACK PAIN
     Dosage: 200 MILLIGRAM
     Route: 040
     Dates: start: 20200110, end: 20200112
  3. ALTRACET [Concomitant]
     Indication: INFLAMMATION
     Dosage: 4 DOSAGE FORMS
     Route: 003
     Dates: start: 20191216, end: 20200106
  4. HYDROCHLOROTHIAZIDE. [Concomitant]
     Active Substance: HYDROCHLOROTHIAZIDE
     Indication: HYPERTENSION
     Dosage: 12.5 MILLIGRAM
     Route: 048
     Dates: start: 2016
  5. ESSENTIALE [Concomitant]
     Indication: ANTIVIRAL PROPHYLAXIS
     Dosage: 1800 MILLIGRAM
     Route: 048
     Dates: start: 20191112
  6. KALIPOZ [Concomitant]
     Active Substance: POTASSIUM CHLORIDE
     Indication: HYPOKALAEMIA
     Dosage: 30 MILLIEQUIVALENTS
     Route: 048
     Dates: start: 20200109, end: 20200112
  7. HYDROXYCARBAMID [Concomitant]
     Active Substance: HYDROXYUREA
     Dosage: 2 GRAM
     Route: 048
     Dates: start: 20200111, end: 20200112
  8. MORPHINI SULFAS [Concomitant]
     Active Substance: MORPHINE SULFATE
     Indication: BACK PAIN
     Dosage: 5 MILLIGRAM
     Route: 058
     Dates: start: 20200107, end: 20200107
  9. MYDOCALM FORTE [Concomitant]
     Indication: BACK PAIN
     Dosage: 300 MILLIGRAM
     Route: 048
     Dates: start: 20200105, end: 20200112
  10. ZINNAT [Concomitant]
     Active Substance: CEFUROXIME
     Indication: INFLAMMATION
     Dosage: 1000 MILLIGRAM
     Route: 048
     Dates: start: 20191216, end: 20200106
  11. AZACITIDINE. [Suspect]
     Active Substance: AZACITIDINE
     Indication: ACUTE MYELOID LEUKAEMIA
     Dosage: 138.75 MILLIGRAM
     Route: 058
     Dates: start: 20191018, end: 20191215
  12. WALSARTAN [Concomitant]
     Indication: HYPERTENSION
     Dosage: 80 MILLIGRAM
     Route: 048
     Dates: start: 2016
  13. TRAMAL DORETA [Concomitant]
     Indication: BACK PAIN
     Dosage: 112.5 MILLIGRAM
     Route: 048
     Dates: start: 20200105, end: 20200109
  14. POTASSIUM CHLORIDE. [Concomitant]
     Active Substance: POTASSIUM CHLORIDE
     Indication: HYPOKALAEMIA
     Dosage: 40 MILLIEQUIVALENTS
     Route: 040
     Dates: start: 20200109, end: 20200112
  15. POTASSIUM CHLORIDE. [Concomitant]
     Active Substance: POTASSIUM CHLORIDE
     Dosage: 20 MILLIEQUIVALENTS
     Route: 040
     Dates: start: 20200111, end: 20200111
  16. PARACETAMOL [Concomitant]
     Active Substance: ACETAMINOPHEN
     Indication: BACK PAIN
     Dosage: 975 MILLIGRAM
     Route: 048
     Dates: start: 20200105, end: 20200109
  17. VEROSPIRON [Concomitant]
     Active Substance: SPIRONOLACTONE
     Indication: HYPOKALAEMIA
     Dosage: 300 MILLIGRAM
     Route: 040
     Dates: start: 20200109
  18. HYDROXYCARBAMID [Concomitant]
     Active Substance: HYDROXYUREA
     Indication: HYPERLEUKOCYTOSIS
     Dosage: 1000 MILLIGRAM
     Route: 048
     Dates: start: 20200110

REACTIONS (1)
  - Pneumonia [Fatal]

NARRATIVE: CASE EVENT DATE: 20200105
